FAERS Safety Report 9987474 (Version 2)
Quarter: 2014Q2

REPORT INFORMATION
  Report Type: Spontaneous
  Country: US (occurrence: US)
  Receive Date: 20140307
  Receipt Date: 20140402
  Transmission Date: 20141212
  Serious: No
  Sender: FDA-Public Use
  Company Number: US-AMGEN-USASP2014008925

PATIENT
  Age: 43 Year
  Sex: Female
  Weight: 85.71 kg

DRUGS (4)
  1. ENBREL [Suspect]
     Indication: PSORIASIS
     Dosage: UNK UNK, QWK
     Route: 065
     Dates: start: 201309, end: 20140218
  2. ENBREL [Suspect]
     Indication: RHEUMATOID ARTHRITIS
  3. METHOTREXATE [Concomitant]
     Dosage: 9 ML, QWK
  4. PROVERA [Concomitant]
     Dosage: ONE PILL DAILY FOR DAYS 1-10 OF EACH MONTH
     Route: 048

REACTIONS (1)
  - Pustular psoriasis [Not Recovered/Not Resolved]
